FAERS Safety Report 8789849 (Version 2)
Quarter: 2012Q4

REPORT INFORMATION
  Report Type: 
  Country: US (occurrence: US)
  Receive Date: 20120917
  Receipt Date: 20120927
  Transmission Date: 20130627
  Serious: Yes (Hospitalization, Other)
  Sender: FDA-Public Use
  Company Number: US-UCBSA-065713

PATIENT
  Age: 8 Year
  Sex: Male

DRUGS (4)
  1. EQUASYM [Suspect]
     Indication: ATTENTION DEFICIT/HYPERACTIVITY DISORDER
  2. CITALOPRAM [Concomitant]
  3. CLONIDINE [Concomitant]
  4. DEXTROMETHORPHAN [Concomitant]
     Indication: NASOPHARYNGITIS

REACTIONS (2)
  - Serotonin syndrome [Unknown]
  - Nasopharyngitis [Unknown]
